FAERS Safety Report 5470604-6 (Version None)
Quarter: 2007Q3

REPORT INFORMATION
  Report Type: 
  Country: None (occurrence: None)
  Receive Date: 20070927
  Receipt Date: 20070927
  Transmission Date: 20080115
  Serious: No
  Sender: FDA-Public Use
  Company Number: None

PATIENT
  Age: 70 Year
  Sex: Male
  Weight: 61.2356 kg

DRUGS (1)
  1. NITROGLYCERIN [Suspect]
     Indication: ACUTE MYOCARDIAL INFARCTION
     Dosage: 12 ML/HOUR
     Route: 041
     Dates: start: 20070810, end: 20070810

REACTIONS (2)
  - DEVICE MALFUNCTION [None]
  - INCORRECT DOSE ADMINISTERED [None]
